FAERS Safety Report 6580061-4 (Version None)
Quarter: 2010Q1

REPORT INFORMATION
  Report Type: 
  Country: None (occurrence: None)
  Receive Date: 20100212
  Receipt Date: 20100202
  Transmission Date: 20100710
  Serious: Yes (Other)
  Sender: FDA-Public Use
  Company Number: JP-ASTRAZENECA-2010SE06015

PATIENT
  Age: 28 Year
  Sex: Male

DRUGS (5)
  1. MEROPENEM [Suspect]
     Indication: DISSEMINATED INTRAVASCULAR COAGULATION
     Route: 042
     Dates: start: 20100103, end: 20100107
  2. MEROPENEM [Suspect]
     Indication: PYREXIA
     Route: 042
     Dates: start: 20100103, end: 20100107
  3. PRODIF [Concomitant]
     Dates: start: 20100103
  4. CEFMETAZOLE [Concomitant]
  5. GASTER [Concomitant]

REACTIONS (2)
  - JAUNDICE [None]
  - PLATELET COUNT DECREASED [None]
